FAERS Safety Report 8465582-1 (Version None)
Quarter: 2012Q2

REPORT INFORMATION
  Report Type: 
  Country: None (occurrence: None)
  Receive Date: 20120619
  Receipt Date: 20120604
  Transmission Date: 20120825
  Serious: Yes (Other)
  Sender: FDA-Public Use
  Company Number: NGX_01122_2012

PATIENT
  Sex: Female

DRUGS (2)
  1. QUTENZA [Suspect]
     Indication: BACK PAIN
     Dosage: 4 DF (PATCH) (TOPICAL)
     Route: 061
     Dates: start: 20120601
  2. QUTENZA [Suspect]
     Indication: SCIATICA
     Dosage: 4 DF (PATCH) (TOPICAL)
     Route: 061
     Dates: start: 20120601

REACTIONS (2)
  - HYPERTENSION [None]
  - APPLICATION SITE PAIN [None]
